FAERS Safety Report 11349690 (Version 1)
Quarter: 2015Q3

REPORT INFORMATION
  Report Type: Spontaneous
  Country: GB (occurrence: GB)
  Receive Date: 20150807
  Receipt Date: 20150807
  Transmission Date: 20151125
  Serious: Yes (Hospitalization, Other)
  Sender: FDA-Public Use
  Company Number: GB-TEVA-582847ACC

PATIENT
  Age: 51 Year
  Sex: Female
  Weight: 62 kg

DRUGS (10)
  1. LANSOPRAZOLE. [Concomitant]
     Active Substance: LANSOPRAZOLE
     Dosage: 2 DOSAGE FORMS DAILY;
     Dates: start: 20130402
  2. PROCHLORPERAZINE. [Concomitant]
     Active Substance: PROCHLORPERAZINE
     Dates: start: 20150629, end: 20150630
  3. EPADERM [Concomitant]
     Active Substance: MINERAL OIL\PETROLATUM\WAX, EMULSIFYING
     Dosage: USE AS DIRECTED.
     Dates: start: 20150713
  4. NAPROXEN. [Concomitant]
     Active Substance: NAPROXEN
     Dosage: TWICE DAILY AS NEEDED.
     Dates: start: 20150713
  5. AMOXICILLIN. [Concomitant]
     Active Substance: AMOXICILLIN
     Dosage: 3 DOSAGE FORMS DAILY;
     Dates: start: 20150713, end: 20150718
  6. BETAMETHASONE VALERATE. [Concomitant]
     Active Substance: BETAMETHASONE VALERATE
     Dosage: USE AS DIRECTED.
     Dates: start: 20150501, end: 20150508
  7. CO-DYDRAMOL [Concomitant]
     Active Substance: ACETAMINOPHEN\DIHYDROCODEINE
     Dosage: TAKE 1 OR 2 FOUR TIMES/DAY. MAXIMUM 8 TABLETS IN 24 HOURS.
     Dates: start: 20130920
  8. PROPRANOLOL [Concomitant]
     Active Substance: PROPRANOLOL\PROPRANOLOL HYDROCHLORIDE
     Dosage: 4 DOSAGE FORMS DAILY; TAKE 2 IN THE MORNING AND 2 AT NIGHT.
     Dates: start: 20120924
  9. RIZATRIPTAN. [Concomitant]
     Active Substance: RIZATRIPTAN
     Dosage: AS DIRECTED.
     Dates: start: 20150216
  10. SUMATRIPTAN. [Suspect]
     Active Substance: SUMATRIPTAN
     Route: 058
     Dates: start: 20150629

REACTIONS (4)
  - Discomfort [Recovered/Resolved]
  - Pharyngeal oedema [Recovered/Resolved]
  - Rash macular [Recovered/Resolved]
  - Hypersensitivity [Recovered/Resolved]

NARRATIVE: CASE EVENT DATE: 20150721
